FAERS Safety Report 20083446 (Version 3)
Quarter: 2023Q4

REPORT INFORMATION
  Report Type: Report from Study
  Country: BR (occurrence: BR)
  Receive Date: 20211118
  Receipt Date: 20231101
  Transmission Date: 20240110
  Serious: Yes (Death, Hospitalization, Other)
  Sender: FDA-Public Use
  Company Number: BR-ABBVIE-21K-020-4165141-00

PATIENT
  Sex: Female
  Weight: 52 kg

DRUGS (3)
  1. RINVOQ [Suspect]
     Active Substance: UPADACITINIB
     Indication: Rheumatoid arthritis
     Dosage: FORM STRENGTH: 15 MILLIGRAM?START DATE TEXT: 08-JUL-2021 OR 08-AUG-2021
     Route: 048
     Dates: start: 20210708, end: 20211205
  2. RINVOQ [Suspect]
     Active Substance: UPADACITINIB
     Indication: Rheumatoid arthritis
     Dosage: 1 TABLET
     Route: 048
     Dates: end: 20221231
  3. RISEDRONATE SODIUM [Concomitant]
     Active Substance: RISEDRONATE SODIUM
     Indication: Product used for unknown indication

REACTIONS (7)
  - Endocarditis bacterial [Fatal]
  - Muscle spasms [Unknown]
  - Immunodeficiency [Unknown]
  - Renal atrophy [Unknown]
  - Skin cancer [Unknown]
  - Vital functions abnormal [Unknown]
  - Infection [Unknown]

NARRATIVE: CASE EVENT DATE: 20210101
